FAERS Safety Report 13907274 (Version 1)
Quarter: 2017Q3

REPORT INFORMATION
  Report Type: Spontaneous
  Country: US (occurrence: US)
  Receive Date: 20170825
  Receipt Date: 20170825
  Transmission Date: 20171127
  Serious: No
  Sender: FDA-Public Use
  Company Number: US-ROCHE-1308213

PATIENT
  Sex: Male
  Weight: 43.13 kg

DRUGS (1)
  1. NUTROPIN [Suspect]
     Active Substance: SOMATROPIN
     Indication: GROWTH HORMONE DEFICIENCY
     Dosage: 6 NIGHTS A WEEK
     Route: 058
     Dates: start: 20080629

REACTIONS (5)
  - Arthralgia [Not Recovered/Not Resolved]
  - Scoliosis [Not Recovered/Not Resolved]
  - Arthralgia [Unknown]
  - Spinal deformity [Not Recovered/Not Resolved]
  - Gait disturbance [Not Recovered/Not Resolved]
